FAERS Safety Report 14855897 (Version 1)
Quarter: 2018Q2

REPORT INFORMATION
  Report Type: Spontaneous
  Country: US (occurrence: US)
  Receive Date: 20180507
  Receipt Date: 20180507
  Transmission Date: 20180711
  Serious: Yes (Disabling, Other)
  Sender: FDA-Public Use
  Company Number: US-REGENERON PHARMACEUTICALS, INC.-2018-22557

PATIENT

DRUGS (3)
  1. EYLEA [Suspect]
     Active Substance: AFLIBERCEPT
     Indication: PRODUCT USED FOR UNKNOWN INDICATION
     Dosage: 9 INJECTIONS
  2. EYLEA [Suspect]
     Active Substance: AFLIBERCEPT
     Dosage: 10TH INJECTION
     Dates: start: 20180216, end: 20180216
  3. EYLEA [Suspect]
     Active Substance: AFLIBERCEPT
     Dosage: 11TH INJECTION
     Dates: start: 20180406, end: 20180406

REACTIONS (2)
  - Eye inflammation [Recovered/Resolved]
  - Blindness transient [Recovered/Resolved]
